FAERS Safety Report 6401001-4 (Version None)
Quarter: 2009Q4

REPORT INFORMATION
  Report Type: 
  Country: None (occurrence: None)
  Receive Date: 20091015
  Receipt Date: 20070420
  Transmission Date: 20100525
  Serious: Yes (Disabling)
  Sender: FDA-Public Use
  Company Number: US-ASTRAZENECA-2006UW08350

PATIENT
  Sex: Female
  Weight: 88 kg

DRUGS (17)
  1. SEROQUEL [Suspect]
     Indication: SLEEP DISORDER
     Dosage: 100 MG-600 MG DAILY
     Route: 048
     Dates: start: 20020709
  2. SEROQUEL [Suspect]
     Indication: DEPRESSION
     Dosage: 100 MG-600 MG DAILY
     Route: 048
     Dates: start: 20020709
  3. SEROQUEL [Suspect]
     Indication: ANXIETY
     Dosage: 100 MG-600 MG DAILY
     Route: 048
     Dates: start: 20020709
  4. SEROQUEL [Suspect]
     Route: 048
  5. SEROQUEL [Suspect]
     Route: 048
  6. SEROQUEL [Suspect]
     Route: 048
  7. PAXIL [Concomitant]
     Indication: DEPRESSION
     Dates: start: 20010502
  8. BUSPAR [Concomitant]
     Indication: AFFECTIVE DISORDER
     Dosage: 30 MG-60 MG DAILY
     Route: 048
     Dates: start: 20010502
  9. NEXIUM [Concomitant]
     Dosage: 40 MG-80 MG DAILY
     Dates: start: 20020530
  10. LISINOPRIL [Concomitant]
     Indication: HYPERTENSION
     Dosage: 5 MG-10 MG DAILY
     Route: 048
     Dates: start: 20030108
  11. TRAZODONE [Concomitant]
     Indication: INSOMNIA
     Dosage: 50 MG-100 MG DAILY
     Route: 048
     Dates: start: 20010502
  12. DEPAKOTE [Concomitant]
     Dosage: 150 MG-1500 MG
     Route: 048
     Dates: start: 20031001
  13. XANAX [Concomitant]
     Dosage: 0.5 MG-1.5 MG DAILY
     Dates: start: 20000510
  14. TYLENOL (CAPLET) [Concomitant]
     Indication: PAIN
     Dates: start: 20000322
  15. METFORMIN HYDROCHLORIDE [Concomitant]
     Route: 048
     Dates: start: 20050114
  16. EFFEXOR XR [Concomitant]
     Dosage: 75 MG-225 MG DAILY
     Dates: start: 20011210
  17. PROTONIX [Concomitant]
     Route: 048
     Dates: start: 20011210

REACTIONS (1)
  - ILL-DEFINED DISORDER [None]
